FAERS Safety Report 6130705-6 (Version None)
Quarter: 2009Q1

REPORT INFORMATION
  Report Type: 
  Country: None (occurrence: None)
  Receive Date: 20090325
  Receipt Date: 20090319
  Transmission Date: 20090719
  Serious: Yes (Hospitalization, Other)
  Sender: FDA-Public Use
  Company Number: US-JNJFOC-20090100591

PATIENT
  Sex: Female
  Weight: 28.58 kg

DRUGS (6)
  1. CONCERTA [Suspect]
     Dosage: 1 AM
     Route: 048
  2. CONCERTA [Suspect]
     Indication: ATTENTION DEFICIT/HYPERACTIVITY DISORDER
     Dosage: SINCE 7 YEARS
     Route: 048
  3. REMERON [Concomitant]
     Indication: ATTENTION DEFICIT/HYPERACTIVITY DISORDER
     Route: 065
  4. DEPAKOTE [Concomitant]
     Route: 065
  5. TRAZODONE HCL [Concomitant]
     Route: 065
  6. GENOTROPHIN [Concomitant]
     Route: 065

REACTIONS (2)
  - WEIGHT DECREASED [None]
  - WEIGHT GAIN POOR [None]
